FAERS Safety Report 6648518-5 (Version None)
Quarter: 2010Q1

REPORT INFORMATION
  Report Type: 
  Country: None (occurrence: None)
  Receive Date: 20100319
  Receipt Date: 20100304
  Transmission Date: 20100710
  Serious: Yes (Death)
  Sender: FDA-Public Use
  Company Number: AE 2010-039

PATIENT
  Age: 29 Year
  Sex: Male

DRUGS (1)
  1. FAZACLO ODT [Suspect]
     Dosage: 200MG DAILY PO
     Route: 048
     Dates: start: 20071126

REACTIONS (1)
  - COMPLETED SUICIDE [None]
